FAERS Safety Report 7550899-5 (Version None)
Quarter: 2011Q2

REPORT INFORMATION
  Report Type: 
  Country: None (occurrence: None)
  Receive Date: 20110616
  Receipt Date: 20110602
  Transmission Date: 20111010
  Serious: Yes (Death)
  Sender: FDA-Public Use
  Company Number: GB-RANBAXY-2011R1-45213

PATIENT
  Sex: Male

DRUGS (5)
  1. LAMOTRIGINE [Suspect]
     Indication: EPILEPSY
     Dosage: UNK
     Route: 065
  2. TOPIRAMATE [Suspect]
     Indication: EPILEPSY
     Dosage: UNK
     Route: 048
  3. VALPROIC ACID [Suspect]
     Indication: EPILEPSY
     Dosage: UNK
     Route: 065
  4. PHENYTOIN [Suspect]
     Indication: EPILEPSY
     Dosage: UNK
     Route: 065
  5. TOPIRAMATE [Suspect]
     Dosage: UNK
     Route: 065

REACTIONS (3)
  - RENAL FAILURE [None]
  - MITOCHONDRIAL ENZYME DEFICIENCY [None]
  - SEPSIS [None]
